FAERS Safety Report 9473647 (Version 2)
Quarter: 2013Q3

REPORT INFORMATION
  Report Type: Spontaneous
  Country: US (occurrence: US)
  Receive Date: 20130823
  Receipt Date: 20130823
  Transmission Date: 20140515
  Serious: No
  Sender: FDA-Public Use
  Company Number: US-BRISTOL-MYERS SQUIBB COMPANY-16819229

PATIENT
  Age: 71 Year
  Sex: Female
  Weight: 93 kg

DRUGS (3)
  1. SPRYCEL [Suspect]
     Indication: CHRONIC MYELOID LEUKAEMIA
     Dosage: 20JUL2012
     Dates: start: 20120701
  2. THIAZIDE [Concomitant]
  3. LASIX [Concomitant]

REACTIONS (5)
  - Fluid retention [Recovered/Resolved]
  - Contusion [Unknown]
  - Diarrhoea [Unknown]
  - Fall [Unknown]
  - Drug dose omission [Unknown]
